FAERS Safety Report 14356278 (Version 1)
Quarter: 2018Q1

REPORT INFORMATION
  Report Type: Spontaneous
  Country: US (occurrence: US)
  Receive Date: 20180105
  Receipt Date: 20180105
  Transmission Date: 20180509
  Serious: Yes (Other)
  Sender: FDA-Public Use
  Company Number: US-FRESENIUS KABI-FK201800184

PATIENT
  Age: 79 Year
  Sex: Female

DRUGS (1)
  1. ROPIVACAINE (MANUFACTURER UNKNOWN) [Suspect]
     Active Substance: ROPIVACAINE
     Indication: GENERAL ANAESTHESIA
     Route: 065

REACTIONS (4)
  - Stridor [Recovered/Resolved]
  - Respiratory failure [Recovered/Resolved]
  - Respiratory distress [Recovered/Resolved]
  - Aphonia [Recovered/Resolved]
